FAERS Safety Report 9456629 (Version 1)
Quarter: 2013Q3

REPORT INFORMATION
  Report Type: Report from Study
  Country: FR (occurrence: FR)
  Receive Date: 20130813
  Receipt Date: 20130813
  Transmission Date: 20140515
  Serious: Yes (Hospitalization, Other)
  Sender: FDA-Public Use
  Company Number: FR-ASTRAZENECA-2013SE56550

PATIENT
  Age: 27466 Day
  Sex: Female

DRUGS (9)
  1. AZD6140 [Suspect]
     Indication: ACUTE MYOCARDIAL INFARCTION
     Dosage: 180 MG LOADING DOSE IN PRE HOSPITAL
     Route: 048
     Dates: start: 20130702, end: 20130702
  2. AZD6140 [Suspect]
     Indication: ACUTE MYOCARDIAL INFARCTION
     Route: 048
  3. STUDY PROCEDURE [Suspect]
  4. KARDEGIC [Concomitant]
     Route: 048
  5. CARDENSIEL [Concomitant]
     Route: 048
     Dates: start: 20130703
  6. COVERSYL [Concomitant]
     Route: 048
     Dates: start: 20130703
  7. INEXIUM [Concomitant]
     Route: 048
     Dates: start: 20130704
  8. CRESTOR [Concomitant]
     Route: 048
     Dates: start: 20130705
  9. DIAMICRON [Concomitant]
     Route: 048
     Dates: start: 20130705

REACTIONS (1)
  - Cardiac tamponade [Recovered/Resolved]
